FAERS Safety Report 5952644-3 (Version None)
Quarter: 2008Q4

REPORT INFORMATION
  Report Type: 
  Country: None (occurrence: None)
  Receive Date: 20081029
  Receipt Date: 20080811
  Transmission Date: 20090506
  Serious: Yes (Other)
  Sender: FDA-Public Use
  Company Number: 175818USA

PATIENT
  Age: 67 Year
  Sex: Male

DRUGS (1)
  1. IFOSFAMIDE [Suspect]
     Indication: MANTLE CELL LYMPHOMA
     Dosage: 9.5 GRAM

REACTIONS (1)
  - NEUROTOXICITY [None]
